FAERS Safety Report 9465226 (Version 2)
Quarter: 2013Q3

REPORT INFORMATION
  Report Type: Spontaneous
  Country: CN (occurrence: CN)
  Receive Date: 20130819
  Receipt Date: 20130829
  Transmission Date: 20140515
  Serious: Yes (Death, Other)
  Sender: FDA-Public Use
  Company Number: PHHY2013CN088836

PATIENT
  Age: 26 Year
  Sex: Female

DRUGS (13)
  1. CICLOSPORIN [Suspect]
     Indication: STEM CELL TRANSPLANT
  2. METHOTREXATE [Suspect]
     Indication: STEM CELL TRANSPLANT
  3. GANCICLOVIR [Suspect]
     Indication: ANTIVIRAL PROPHYLAXIS
  4. ACICLOVIR [Suspect]
     Indication: ANTIVIRAL PROPHYLAXIS
  5. ANTITHYMOCYTE IMMUNOGLOBULIN (RABBIT) [Suspect]
     Indication: PROPHYLAXIS AGAINST GRAFT VERSUS HOST DISEASE
  6. BASILIXIMAB [Suspect]
     Indication: GRAFT VERSUS HOST DISEASE IN SKIN
     Dosage: 20 MG, UNK
  7. METHYLPREDNISOLONE [Suspect]
     Indication: GRAFT VERSUS HOST DISEASE IN SKIN
  8. CYTARABINE [Suspect]
     Indication: GRAFT VERSUS HOST DISEASE IN SKIN
     Dosage: 0.2 G, UNK
  9. TACROLIMUS [Suspect]
     Indication: GRAFT VERSUS HOST DISEASE IN SKIN
  10. ALPROSTADIL [Concomitant]
     Indication: PROPHYLAXIS
  11. HEPARIN [Concomitant]
     Indication: PROPHYLAXIS
  12. SULFAMETHOXAZOLE [Concomitant]
     Indication: PROPHYLAXIS
  13. ITRACONAZOLE [Concomitant]
     Indication: ANTIFUNGAL PROPHYLAXIS

REACTIONS (19)
  - Thrombotic microangiopathy [Fatal]
  - Pulmonary alveolar haemorrhage [Fatal]
  - Acute graft versus host disease in skin [Unknown]
  - Butterfly rash [Recovered/Resolved]
  - Rash [Recovered/Resolved]
  - Arthralgia [Recovered/Resolved]
  - Blister [Recovered/Resolved]
  - Acute graft versus host disease in intestine [Unknown]
  - Faeces discoloured [Recovered/Resolved]
  - Diarrhoea [Recovered/Resolved]
  - Haematochezia [Recovered/Resolved]
  - Epstein-Barr viraemia [Unknown]
  - Pyrexia [Recovered/Resolved]
  - Cytomegalovirus infection [Unknown]
  - Pleural effusion [Unknown]
  - Lung infection [Unknown]
  - Cough [Unknown]
  - Pseudomonal sepsis [Unknown]
  - Ascites [Unknown]
